FAERS Safety Report 7247542-1 (Version None)
Quarter: 2011Q1

REPORT INFORMATION
  Report Type: 
  Country: None (occurrence: None)
  Receive Date: 20110127
  Receipt Date: 20110114
  Transmission Date: 20110831
  Serious: Yes (Other)
  Sender: FDA-Public Use
  Company Number: GXKR2010CH06111

PATIENT
  Sex: Male

DRUGS (10)
  1. CARBOPLATIN [Suspect]
     Dosage: 670 MG
     Dates: start: 20100519
  2. TAVEGYL [Concomitant]
  3. CARBOPLATIN [Suspect]
     Indication: SQUAMOUS CELL CARCINOMA
     Dosage: 670 MG (TWO WEEKLY CYCLES)
     Route: 042
     Dates: start: 20100512
  4. PACLITAXEL [Suspect]
     Dosage: 2ND CYCLE: 160 MG (TWO WEEKLY CYCLES)
     Dates: start: 20100519
  5. CARBOPLATIN [Suspect]
     Dosage: 670 MG
     Dates: start: 20100602
  6. PACLITAXEL [Suspect]
     Dosage: 2ND CYCLE: 160 MG (TWO WEEKLY CYCLES)
     Dates: start: 20100602
  7. DEXAMETHASONE [Concomitant]
  8. NAVOBAN [Concomitant]
  9. PACLITAXEL [Suspect]
     Indication: SQUAMOUS CELL CARCINOMA
     Dosage: 160 MG CYCLIC, 1ST CYCLE
     Route: 042
     Dates: start: 20100512
  10. ZANTAC [Concomitant]

REACTIONS (1)
  - PRIAPISM [None]
